FAERS Safety Report 9128108 (Version 1)
Quarter: 2013Q1

REPORT INFORMATION
  Report Type: Spontaneous
  Country: AR (occurrence: AR)
  Receive Date: 20130125
  Receipt Date: 20130125
  Transmission Date: 20140127
  Serious: Yes (Hospitalization)
  Sender: FDA-Public Use
  Company Number: AR-ROCHE-1182395

PATIENT
  Age: 54 Year
  Sex: Female

DRUGS (6)
  1. ACTEMRA [Suspect]
     Indication: RHEUMATOID ARTHRITIS
     Route: 042
     Dates: start: 20120722
  2. LEFLUNOMIDE [Concomitant]
  3. FLUOXETINE [Concomitant]
  4. PREGABALIN [Concomitant]
  5. TRAMADOL [Concomitant]
  6. HYDROCHLOROTHIAZIDE [Concomitant]

REACTIONS (3)
  - Hyponatraemia [Recovering/Resolving]
  - Sensory disturbance [Recovering/Resolving]
  - Oedema [Recovering/Resolving]
